FAERS Safety Report 7911612-2 (Version None)
Quarter: 2011Q4

REPORT INFORMATION
  Report Type: 
  Country: None (occurrence: None)
  Receive Date: 20111114
  Receipt Date: 20111114
  Transmission Date: 20120403
  Serious: Yes (Other)
  Sender: FDA-Public Use
  Company Number: None

PATIENT
  Sex: Female
  Weight: 90.718 kg

DRUGS (3)
  1. ACTOS [Suspect]
  2. B-100 CAPS [Concomitant]
     Indication: ANXIETY
     Dosage: ONE CAPSULE
     Route: 048
     Dates: start: 20101020, end: 20110220
  3. L-TYROSINE [Suspect]
     Indication: ANXIETY
     Dosage: ONE CAPSULE - 500 MG
     Route: 048
     Dates: start: 20101020, end: 20110220

REACTIONS (3)
  - FATIGUE [None]
  - BLADDER CANCER [None]
  - SELF-MEDICATION [None]
